FAERS Safety Report 24970405 (Version 1)
Quarter: 2025Q1

REPORT INFORMATION
  Report Type: Spontaneous
  Country: JP (occurrence: JP)
  Receive Date: 20250214
  Receipt Date: 20250214
  Transmission Date: 20250409
  Serious: Yes (Hospitalization, Other)
  Sender: Phathom Pharmaceuticals
  Company Number: JP-PHATHOM PHARMACEUTICALS INC.-2025PHT00275

PATIENT
  Age: 9 Decade
  Sex: Female
  Weight: 45.3 kg

DRUGS (12)
  1. VONOPRAZAN FUMARATE [Suspect]
     Active Substance: VONOPRAZAN FUMARATE
     Indication: Product used for unknown indication
     Route: 048
  2. SAMSCA [Suspect]
     Active Substance: TOLVAPTAN
     Indication: Product used for unknown indication
     Route: 048
  3. BISOPROLOL FUMARATE [Concomitant]
     Active Substance: BISOPROLOL FUMARATE
  4. SPIRONOLACTONE [Concomitant]
     Active Substance: SPIRONOLACTONE
  5. EMPAGLIFLOZIN [Concomitant]
     Active Substance: EMPAGLIFLOZIN
  6. VERICIGUAT [Concomitant]
     Active Substance: VERICIGUAT
  7. FUROSEMIDE [Concomitant]
     Active Substance: FUROSEMIDE
  8. ROSUVASTATIN CALCIUM [Concomitant]
     Active Substance: ROSUVASTATIN CALCIUM
  9. ZOLPIDEM TARTRATE [Concomitant]
     Active Substance: ZOLPIDEM TARTRATE
  10. MAGNESIUM OXIDE [Concomitant]
     Active Substance: MAGNESIUM OXIDE
  11. MINODRONIC ACID [Concomitant]
     Active Substance: MINODRONIC ACID
  12. ELDECALCITOL [Concomitant]
     Active Substance: ELDECALCITOL

REACTIONS (6)
  - Torsade de pointes [Unknown]
  - Cardiac failure congestive [Unknown]
  - Loss of consciousness [Unknown]
  - Urinary tract infection [Recovering/Resolving]
  - Renal impairment [Recovering/Resolving]
  - Stress cardiomyopathy [Unknown]
